FAERS Safety Report 6544327-6 (Version None)
Quarter: 2010Q1

REPORT INFORMATION
  Report Type: 
  Country: None (occurrence: None)
  Receive Date: 20100120
  Receipt Date: 20100120
  Transmission Date: 20100710
  Serious: Yes (Other)
  Sender: FDA-Public Use
  Company Number: None

PATIENT
  Age: 80 Year
  Sex: Female
  Weight: 77.1115 kg

DRUGS (2)
  1. SYMBICORT [Suspect]
     Indication: ASTHMA
     Dosage: INHALE 2 PUFFS TWICE DAILY
     Dates: start: 20100107, end: 20100110
  2. SYMBICORT [Suspect]
     Indication: BRONCHITIS
     Dosage: INHALE 2 PUFFS TWICE DAILY
     Dates: start: 20100107, end: 20100110

REACTIONS (4)
  - ECONOMIC PROBLEM [None]
  - NERVOUSNESS [None]
  - PALPITATIONS [None]
  - UNEVALUABLE EVENT [None]
